FAERS Safety Report 17994375 (Version 1)
Quarter: 2020Q3

REPORT INFORMATION
  Report Type: Spontaneous
  Country: US (occurrence: US)
  Receive Date: 20200708
  Receipt Date: 20200708
  Transmission Date: 20201103
  Serious: No
  Sender: FDA-Public Use
  Company Number: US-AMGEN-USASP2020106491

PATIENT
  Sex: Female
  Weight: 110.67 kg

DRUGS (8)
  1. PREDNISONE. [Concomitant]
     Active Substance: PREDNISONE
     Dosage: 20 MILLIGRAM, QD
     Dates: start: 202007
  2. NPLATE [Suspect]
     Active Substance: ROMIPLOSTIM
     Indication: IMMUNE THROMBOCYTOPENIA
     Dosage: 100 MICROGRAM
     Route: 065
     Dates: start: 201802
  3. NPLATE [Suspect]
     Active Substance: ROMIPLOSTIM
     Dosage: 220 MICROGRAM
     Route: 065
  4. PREDNISONE. [Concomitant]
     Active Substance: PREDNISONE
     Dosage: 60 MILLIGRAM
     Dates: start: 202004
  5. NPLATE [Suspect]
     Active Substance: ROMIPLOSTIM
     Dosage: 112 MICROGRAM
     Route: 065
  6. NPLATE [Suspect]
     Active Substance: ROMIPLOSTIM
     Dosage: 225 MICROGRAM
     Route: 065
  7. NPLATE [Suspect]
     Active Substance: ROMIPLOSTIM
     Dosage: 220 MICROGRAM, QWK, (WITHIN THE RANGE OF 215 TO 225)
     Route: 065
  8. NPLATE [Suspect]
     Active Substance: ROMIPLOSTIM
     Dosage: 110 MICROGRAM, QWK
     Route: 065

REACTIONS (1)
  - Platelet count decreased [Unknown]
